FAERS Safety Report 6635878-4 (Version None)
Quarter: 2010Q1

REPORT INFORMATION
  Report Type: 
  Country: None (occurrence: None)
  Receive Date: 20100311
  Receipt Date: 20100224
  Transmission Date: 20100710
  Serious: Yes (Death)
  Sender: FDA-Public Use
  Company Number: PAR_03133_2009

PATIENT
  Age: 64 Year
  Sex: Male

DRUGS (1)
  1. MEGACE ES [Suspect]
     Indication: DRUG USE FOR UNKNOWN INDICATION
     Dosage: 1 DF, QD 625MG/5ML, ORAL
     Route: 048

REACTIONS (1)
  - LUNG DISORDER [None]
